FAERS Safety Report 6251427-7 (Version None)
Quarter: 2009Q2

REPORT INFORMATION
  Report Type: 
  Country: None (occurrence: None)
  Receive Date: 20090630
  Receipt Date: 20090625
  Transmission Date: 20091009
  Serious: Yes (Hospitalization)
  Sender: FDA-Public Use
  Company Number: US-MERCK-0906USA03790

PATIENT
  Age: 33 Year
  Sex: Female

DRUGS (5)
  1. ADVAIR HFA [Concomitant]
  2. ALBUTEROL [Concomitant]
     Route: 065
  3. XOPENEX [Concomitant]
     Route: 065
     Dates: end: 20090411
  4. SINGULAIR [Suspect]
     Indication: ASTHMA
     Route: 048
     Dates: start: 20030101
  5. OXYGEN [Concomitant]
     Route: 065

REACTIONS (3)
  - ASTHMA [None]
  - BACK PAIN [None]
  - GASTROOESOPHAGEAL REFLUX DISEASE [None]
